FAERS Safety Report 10751384 (Version 1)
Quarter: 2015Q1

REPORT INFORMATION
  Report Type: Spontaneous
  Country: GR (occurrence: None)
  Receive Date: 20150128
  Receipt Date: 20150128
  Transmission Date: 20150721
  Serious: Yes (Death)
  Sender: FDA-Public Use
  Company Number: NGX_02721_2015

PATIENT
  Sex: Female

DRUGS (1)
  1. QUTENZA [Suspect]
     Active Substance: CAPSAICIN
     Indication: NEUROPATHY PERIPHERAL
     Dosage: [CUTANEOUS PATCH]
     Route: 062
     Dates: start: 20141102, end: 20141102

REACTIONS (1)
  - Death [None]

NARRATIVE: CASE EVENT DATE: 201412
